FAERS Safety Report 8098095-X (Version None)
Quarter: 2012Q1

REPORT INFORMATION
  Report Type: 
  Country: None (occurrence: None)
  Receive Date: 20120128
  Receipt Date: 20110808
  Transmission Date: 20120608
  Serious: No
  Sender: FDA-Public Use
  Company Number: US-ABBOTT-11P-163-0844920-00

PATIENT
  Sex: Male

DRUGS (2)
  1. HUMIRA [Suspect]
     Indication: COLITIS ULCERATIVE
     Dosage: 80 MG SECOND LOADING DOSE
     Dates: start: 20110720, end: 20110720
  2. HUMIRA [Suspect]

REACTIONS (1)
  - FATIGUE [None]
